FAERS Safety Report 16795164 (Version 3)
Quarter: 2019Q4

REPORT INFORMATION
  Report Type: Spontaneous
  Country: SI (occurrence: SI)
  Receive Date: 20190911
  Receipt Date: 20191028
  Transmission Date: 20200122
  Serious: Yes (Death, Other)
  Sender: FDA-Public Use
  Company Number: SI-MYLANLABS-2019M1085069

PATIENT
  Age: 55 Year
  Sex: Female

DRUGS (2)
  1. SILDENAFIL. [Suspect]
     Active Substance: SILDENAFIL
     Indication: PULMONARY ARTERIAL HYPERTENSION
     Dosage: UNK
  2. SILDENAFIL. [Suspect]
     Active Substance: SILDENAFIL
     Indication: RIGHT VENTRICULAR FAILURE
     Dosage: UNK
     Route: 065
     Dates: start: 2007

REACTIONS (10)
  - Death [Fatal]
  - Acute kidney injury [Fatal]
  - Dyspnoea at rest [Unknown]
  - Oxygen saturation decreased [Unknown]
  - Chronic respiratory failure [Fatal]
  - Langerhans^ cell histiocytosis [Unknown]
  - Respiratory failure [Recovered/Resolved]
  - Chest pain [Recovered/Resolved]
  - Weight decreased [Unknown]
  - Pneumothorax [Unknown]

NARRATIVE: CASE EVENT DATE: 2012
